FAERS Safety Report 7548112-8 (Version None)
Quarter: 2011Q2

REPORT INFORMATION
  Report Type: 
  Country: None (occurrence: None)
  Receive Date: 20110615
  Receipt Date: 20110601
  Transmission Date: 20111010
  Serious: Yes (Hospitalization, Other)
  Sender: FDA-Public Use
  Company Number: GB-RANBAXY-2011R1-44995

PATIENT
  Age: 29 Year
  Sex: Female

DRUGS (5)
  1. ACYCLOVIR [Suspect]
     Indication: RETINAL DISORDER
     Dosage: UNK MG/KG, UNK
     Route: 048
  2. DEXAMETHASONE [Concomitant]
     Indication: NECROTISING RETINITIS
     Dosage: 01 %, 4/1 DAYS
     Route: 061
  3. LAMIVUDINE [Concomitant]
     Indication: HIV INFECTION
     Route: 065
  4. TENOFOVIR DISOPROXIL FUMARATE [Concomitant]
     Indication: HIV INFECTION
     Route: 065
  5. ACYCLOVIR [Suspect]
     Indication: NECROTISING RETINITIS
     Dosage: 10MG/KG , TID
     Route: 042

REACTIONS (3)
  - RASH MACULAR [None]
  - DRUG HYPERSENSITIVITY [None]
  - ANGIOEDEMA [None]
